FAERS Safety Report 7624872-2 (Version None)
Quarter: 2011Q3

REPORT INFORMATION
  Report Type: 
  Country: None (occurrence: None)
  Receive Date: 20110720
  Receipt Date: 20110711
  Transmission Date: 20111222
  Serious: Yes (Other)
  Sender: FDA-Public Use
  Company Number: IT-ASTRAZENECA-2011SE41553

PATIENT
  Age: 30928 Day
  Sex: Male

DRUGS (11)
  1. EN [Suspect]
     Route: 048
     Dates: start: 20110527, end: 20110527
  2. ALLOPURINOL [Concomitant]
  3. CONGESCOR [Concomitant]
     Route: 048
  4. SEROQUEL [Suspect]
     Route: 048
     Dates: start: 20110526, end: 20110528
  5. LASIX [Concomitant]
     Route: 048
  6. PANTOPRAZOLE SODIUM [Concomitant]
     Route: 048
  7. MADOPAR [Concomitant]
     Route: 048
     Dates: start: 20100525, end: 20110520
  8. XANAX [Suspect]
     Route: 048
     Dates: start: 20100529, end: 20110528
  9. ACETYLSALICYLIC ACID SRT [Concomitant]
  10. ENALAPRIL MALEATE [Concomitant]
     Route: 048
  11. MADOPAR [Concomitant]
     Dosage: 100 MG LEVODOPA + 25 MG BENSERAZIDE; TOTAL DAILY 300 MG LEVODOPA+75MG BENSERAZIDE
     Route: 048
     Dates: start: 20110521, end: 20110528

REACTIONS (3)
  - HYPOTENSION [None]
  - SOPOR [None]
  - LOSS OF CONSCIOUSNESS [None]
